FAERS Safety Report 25892800 (Version 2)
Quarter: 2025Q4

REPORT INFORMATION
  Report Type: Spontaneous
  Country: US (occurrence: US)
  Receive Date: 20251007
  Receipt Date: 20251024
  Transmission Date: 20260117
  Serious: Yes (Other)
  Sender: BAUSCH AND LOMB
  Company Number: US-BAUSCHBL-2025BNL029733

PATIENT
  Age: 73 Year
  Sex: Female

DRUGS (1)
  1. BIOTRUE HYDRATION BOOST [Suspect]
     Active Substance: GLYCERIN
     Indication: Product used for unknown indication

REACTIONS (7)
  - Eye operation [Unknown]
  - Product container issue [Unknown]
  - Product delivery mechanism issue [Unknown]
  - Accidental exposure to product [Unknown]
  - Exposure via skin contact [Unknown]
  - Circumstance or information capable of leading to medication error [Unknown]
  - Product use complaint [Unknown]
